FAERS Safety Report 9723771 (Version 2)
Quarter: 2013Q4

REPORT INFORMATION
  Report Type: Spontaneous
  Country: IT (occurrence: IT)
  Receive Date: 20131202
  Receipt Date: 20131211
  Transmission Date: 20140711
  Serious: Yes (Other)
  Sender: FDA-Public Use
  Company Number: IT-ABBVIE-13P-083-1174545-00

PATIENT
  Age: 27 Year
  Sex: Male

DRUGS (2)
  1. KLACID [Suspect]
     Indication: BRONCHITIS
     Dates: start: 20131107, end: 20131107
  2. LEVITRA [Interacting]
     Indication: ERECTILE DYSFUNCTION
     Route: 048
     Dates: start: 20131107, end: 20131107

REACTIONS (2)
  - Sinus tachycardia [Recovering/Resolving]
  - Drug interaction [Unknown]
